FAERS Safety Report 5106761-0 (Version None)
Quarter: 2006Q3

REPORT INFORMATION
  Report Type: 
  Country: None (occurrence: None)
  Receive Date: 20060731
  Receipt Date: 20050818
  Transmission Date: 20061208
  Serious: Yes (Other)
  Sender: FDA-Public Use
  Company Number: US-JNJFOC-20050804792

PATIENT
  Age: 55 Year
  Sex: Female

DRUGS (1)
  1. RISPERDAL [Suspect]
     Indication: BIPOLAR DISORDER
     Dosage: VARIABLE DAILY DOSING BETWEEN 2 TO 4 MG

REACTIONS (2)
  - DYSTONIA [None]
  - TARDIVE DYSKINESIA [None]
